FAERS Safety Report 16068158 (Version 3)
Quarter: 2019Q1

REPORT INFORMATION
  Report Type: Report from Study
  Country: GB (occurrence: GB)
  Receive Date: 20190313
  Receipt Date: 20190326
  Transmission Date: 20190418
  Serious: Yes (Hospitalization, Disabling, Other)
  Sender: FDA-Public Use
  Company Number: PHFR2014GB007341

PATIENT
  Age: 65 Year
  Sex: Male
  Weight: 98.97 kg

DRUGS (16)
  1. AVASTIN [Suspect]
     Active Substance: BEVACIZUMAB
     Indication: NEOVASCULAR AGE-RELATED MACULAR DEGENERATION
     Dosage: 2 SHOTS
     Route: 031
     Dates: start: 201805
  2. ALBUTEROL. [Concomitant]
     Active Substance: ALBUTEROL
     Indication: ASTHMA
     Dosage: UNK
     Route: 065
  3. SIMVASTATIN. [Concomitant]
     Active Substance: SIMVASTATIN
     Indication: PRODUCT USED FOR UNKNOWN INDICATION
     Dosage: 40 MG QD (TAKEN AT NIGHT)
     Route: 065
  4. LUCENTIS [Suspect]
     Active Substance: RANIBIZUMAB
     Dosage: TOTAL OF 3 SHOTS OVER THE PAST 3 YEARS
     Route: 031
     Dates: start: 201806
  5. AVASTIN [Suspect]
     Active Substance: BEVACIZUMAB
     Indication: DRY AGE-RELATED MACULAR DEGENERATION
     Dosage: ONE SHOT
     Route: 031
     Dates: start: 201709
  6. LUCENTIS [Suspect]
     Active Substance: RANIBIZUMAB
     Dosage: UNK
     Route: 031
     Dates: start: 201805, end: 201805
  7. LUCENTIS [Suspect]
     Active Substance: RANIBIZUMAB
     Indication: NEOVASCULAR AGE-RELATED MACULAR DEGENERATION
     Dosage: 2 SHOTS
     Route: 031
     Dates: start: 201709
  8. LUCENTIS [Suspect]
     Active Substance: RANIBIZUMAB
     Indication: CHOROIDAL NEOVASCULARISATION
     Dosage: 2 SHOTS
     Route: 031
     Dates: start: 20180501
  9. OMEPRAZOLE. [Concomitant]
     Active Substance: OMEPRAZOLE
     Indication: PRODUCT USED FOR UNKNOWN INDICATION
     Dosage: 10 MG, QD
     Route: 065
  10. CARBAMAZEPINE. [Suspect]
     Active Substance: CARBAMAZEPINE
     Dosage: 400 MG, TID
     Route: 048
     Dates: end: 20140828
  11. AVASTIN [Suspect]
     Active Substance: BEVACIZUMAB
     Dosage: UNK
     Route: 031
     Dates: start: 2017
  12. EYLEA [Suspect]
     Active Substance: AFLIBERCEPT
     Indication: MACULAR DEGENERATION
     Route: 065
  13. AMITRIPTYLINE HYDROCHLORIDE. [Suspect]
     Active Substance: AMITRIPTYLINE HYDROCHLORIDE
     Indication: PAIN
     Dosage: 10 MG, QD (TAKEN AT NIGHT)
     Route: 048
     Dates: end: 20140828
  14. ASPIRIN. [Concomitant]
     Active Substance: ASPIRIN
     Indication: PRODUCT USED FOR UNKNOWN INDICATION
     Dosage: 75 MG, QD
     Route: 065
  15. LUCENTIS [Suspect]
     Active Substance: RANIBIZUMAB
     Dosage: 2 SHOTS
     Route: 031
     Dates: start: 20180528
  16. CARBAMAZEPINE. [Suspect]
     Active Substance: CARBAMAZEPINE
     Indication: PAIN
     Dosage: 200 MG, BID
     Route: 048

REACTIONS (22)
  - Atrial fibrillation [Not Recovered/Not Resolved]
  - Neovascular age-related macular degeneration [Unknown]
  - Fall [Unknown]
  - Intentional product use issue [Unknown]
  - Skin exfoliation [Unknown]
  - Dyspnoea [Recovered/Resolved]
  - Muscular weakness [Unknown]
  - Slow speech [Unknown]
  - Gait inability [Unknown]
  - Blindness [Not Recovered/Not Resolved]
  - Drug ineffective [Unknown]
  - Loss of consciousness [Unknown]
  - Blindness unilateral [Not Recovered/Not Resolved]
  - Psoriasis [Unknown]
  - Off label use [Unknown]
  - Pulmonary thrombosis [Unknown]
  - Dry age-related macular degeneration [Unknown]
  - Scar [Not Recovered/Not Resolved]
  - Confusional state [Recovered/Resolved]
  - Agitation [Unknown]
  - Blood cholesterol increased [Unknown]
  - Abdominal pain upper [Unknown]

NARRATIVE: CASE EVENT DATE: 2018
